FAERS Safety Report 10223243 (Version 1)
Quarter: 2014Q2

REPORT INFORMATION
  Report Type: Spontaneous
  Country: US (occurrence: US)
  Receive Date: 20140609
  Receipt Date: 20140609
  Transmission Date: 20141212
  Serious: No
  Sender: FDA-Public Use
  Company Number: US-DRREDDYS-USA/USA/13/0029263

PATIENT
  Age: 16 Year
  Sex: Female
  Weight: 54.4 kg

DRUGS (2)
  1. FEXOFENADINE HCL  OTC [Suspect]
     Indication: RHINITIS ALLERGIC
     Dosage: 180 MG TWICE DAILY
     Route: 048
     Dates: start: 20130423
  2. LACTAID [Concomitant]
     Indication: PRODUCT USED FOR UNKNOWN INDICATION
     Route: 065
     Dates: start: 20130423

REACTIONS (3)
  - Extra dose administered [Unknown]
  - Expired product administered [Unknown]
  - No adverse event [Unknown]
